FAERS Safety Report 11220356 (Version 1)
Quarter: 2015Q2

REPORT INFORMATION
  Report Type: Spontaneous
  Country: BR (occurrence: None)
  Receive Date: 20150624
  Receipt Date: 20150624
  Transmission Date: 20150821
  Serious: Yes (Other)
  Sender: FDA-Public Use
  Company Number: BR-TORRENT-00002973

PATIENT
  Age: 64 Year
  Sex: Female

DRUGS (12)
  1. LIPLESS [Concomitant]
     Active Substance: CIPROFIBRATE
  2. MENELAT [Suspect]
     Active Substance: MIRTAZAPINE
     Indication: DEPRESSION
     Route: 048
     Dates: start: 2010
  3. AMORA [Concomitant]
  4. ISOFLAVONE [Concomitant]
     Active Substance: ISOFLAVONE
  5. SOTALOL. [Concomitant]
     Active Substance: SOTALOL
  6. LOSARTAN [Concomitant]
     Active Substance: LOSARTAN
  7. ALLOPURINOL. [Concomitant]
     Active Substance: ALLOPURINOL
  8. RITMONORM [Concomitant]
     Active Substance: PROPAFENONE HYDROCHLORIDE
  9. VENLIFT OD (INN:VENLAFAXINE HYDROCHLORIDE) [Suspect]
     Active Substance: VENLAFAXINE HYDROCHLORIDE
     Indication: STRESS
     Dosage: 150 MG/75 MG ONCE
     Route: 048
     Dates: start: 2010
  10. NATRILIX [Concomitant]
     Active Substance: INDAPAMIDE
  11. DAFLON [Concomitant]
     Active Substance: DIOSMIN\HESPERIDIN
  12. BENZOBROMARONA [Concomitant]

REACTIONS (11)
  - Drug ineffective [None]
  - Peripheral swelling [None]
  - Uterine cancer [None]
  - Off label use [None]
  - Thrombosis [None]
  - Fall [None]
  - Blue toe syndrome [None]
  - Headache [None]
  - Memory impairment [None]
  - Hypertension [None]
  - Blood triglycerides increased [None]

NARRATIVE: CASE EVENT DATE: 2010
